FAERS Safety Report 13673902 (Version 1)
Quarter: 2017Q2

REPORT INFORMATION
  Report Type: Spontaneous
  Country: US (occurrence: US)
  Receive Date: 20170621
  Receipt Date: 20170621
  Transmission Date: 20170830
  Serious: No
  Sender: FDA-Public Use
  Company Number: US-TEVA-731724ACC

PATIENT
  Sex: Female

DRUGS (1)
  1. DICLOXACILLIN SODIUM. [Suspect]
     Active Substance: DICLOXACILLIN SODIUM
     Route: 065

REACTIONS (1)
  - Drug hypersensitivity [Unknown]
